FAERS Safety Report 21164237 (Version 1)
Quarter: 2022Q3

REPORT INFORMATION
  Report Type: Report from Study
  Country: US (occurrence: US)
  Receive Date: 20220803
  Receipt Date: 20220803
  Transmission Date: 20221027
  Serious: Yes (Hospitalization)
  Sender: FDA-Public Use
  Company Number: US-GILEAD-2022-0591844

PATIENT
  Sex: Male

DRUGS (23)
  1. AZTREONAM LYSINE [Suspect]
     Active Substance: AZTREONAM LYSINE
     Indication: Cystic fibrosis
     Dosage: 75 MG, TID, 28 DAYS ON/28 DAYS OFF
     Route: 055
     Dates: start: 20220706
  2. ALBUTEROL [Concomitant]
     Active Substance: ALBUTEROL
  3. AZITHROMYCIN [Concomitant]
     Active Substance: AZITHROMYCIN
  4. CREON [Concomitant]
     Active Substance: PANCRELIPASE AMYLASE\PANCRELIPASE LIPASE\PANCRELIPASE PROTEASE
  5. CYPROHEPTADINE HYDROCHLORIDE [Concomitant]
     Active Substance: CYPROHEPTADINE HYDROCHLORIDE
  6. ENSURE [Concomitant]
     Active Substance: AMINO ACIDS\DEXTROSE\ELECTROLYTES NOS\SOYBEAN OIL\VITAMINS
  7. MOMETASONE FUROATE [Concomitant]
     Active Substance: MOMETASONE FUROATE
  8. GABAPENTIN [Concomitant]
     Active Substance: GABAPENTIN
  9. LATUDA [Concomitant]
     Active Substance: LURASIDONE HYDROCHLORIDE
  10. LEVAQUIN [Concomitant]
     Active Substance: LEVOFLOXACIN
  11. VITAMINS NOS [Concomitant]
     Active Substance: VITAMINS
  12. OMEPRAZOLE [Concomitant]
     Active Substance: OMEPRAZOLE
  13. ONDANSETRON [Concomitant]
     Active Substance: ONDANSETRON
  14. PREDNISONE [Concomitant]
     Active Substance: PREDNISONE
  15. PROVENTIL [Concomitant]
     Active Substance: ALBUTEROL
  16. PULMICORT TURBUHALER [Concomitant]
     Active Substance: BUDESONIDE
  17. PULMOZYME [Concomitant]
     Active Substance: DORNASE ALFA
  18. QUETIAPINE [Concomitant]
     Active Substance: QUETIAPINE
  19. SODIUM CHLORIDE [Concomitant]
     Active Substance: SODIUM CHLORIDE
  20. TRIKAFTA [Concomitant]
     Active Substance: ELEXACAFTOR\IVACAFTOR\TEZACAFTOR
  21. VENTOLIN [Concomitant]
     Active Substance: ALBUTEROL SULFATE
  22. VITAMIN D3 [Concomitant]
     Active Substance: CHOLECALCIFEROL
  23. .ALPHA.-TOCOPHEROL [Concomitant]
     Active Substance: .ALPHA.-TOCOPHEROL

REACTIONS (1)
  - COVID-19 [Unknown]
